FAERS Safety Report 13577857 (Version 2)
Quarter: 2017Q2

REPORT INFORMATION
  Report Type: Report from Study
  Country: GB (occurrence: GB)
  Receive Date: 20170524
  Receipt Date: 20170619
  Transmission Date: 20170830
  Serious: Yes (Other)
  Sender: FDA-Public Use
  Company Number: GB-FERRINGPH-2017FE02433

PATIENT

DRUGS (1)
  1. SOMATROPIN [Suspect]
     Active Substance: SOMATROPIN
     Indication: GROWTH HORMONE DEFICIENCY
     Dosage: 0.6 MG, UNK
     Route: 065
     Dates: start: 20141104

REACTIONS (5)
  - Headache [Unknown]
  - Injection site pain [Unknown]
  - Benign neoplasm of eye [Unknown]
  - Contraindicated product administered [Unknown]
  - Anxiety [Unknown]
